FAERS Safety Report 15571420 (Version 1)
Quarter: 2018Q4

REPORT INFORMATION
  Report Type: Spontaneous
  Country: US (occurrence: US)
  Receive Date: 20181031
  Receipt Date: 20181031
  Transmission Date: 20190205
  Serious: Yes (Death, Life-Threatening, Other)
  Sender: FDA-Public Use
  Company Number: US-GILEAD-2018-0345003

PATIENT
  Age: 71 Year
  Sex: Female

DRUGS (5)
  1. YESCARTA [Suspect]
     Active Substance: AXICABTAGENE CILOLEUCEL
     Indication: DIFFUSE LARGE B-CELL LYMPHOMA
     Dosage: UNK UNK, SINGLE
     Route: 042
     Dates: start: 20171211, end: 20171211
  2. CISPLATIN. [Concomitant]
     Active Substance: CISPLATIN
     Indication: CHEMOTHERAPY
  3. CIPRO [Concomitant]
     Active Substance: CIPROFLOXACIN HYDROCHLORIDE
  4. GEMCITABINE [Concomitant]
     Active Substance: GEMCITABINE\GEMCITABINE HYDROCHLORIDE
     Indication: CHEMOTHERAPY
  5. DEXAMETHASONE. [Concomitant]
     Active Substance: DEXAMETHASONE
     Indication: CHEMOTHERAPY

REACTIONS (8)
  - Systemic candida [Fatal]
  - Urinary tract infection pseudomonal [Unknown]
  - Cytokine release syndrome [Fatal]
  - Renal failure [Unknown]
  - Haemophagocytic lymphohistiocytosis [Fatal]
  - Hepatic failure [Unknown]
  - Neurotoxicity [Fatal]
  - Pancytopenia [Fatal]

NARRATIVE: CASE EVENT DATE: 201712
